FAERS Safety Report 8606249-6 (Version None)
Quarter: 2012Q3

REPORT INFORMATION
  Report Type: 
  Country: None (occurrence: None)
  Receive Date: 20120820
  Receipt Date: 20120814
  Transmission Date: 20120928
  Serious: Yes (Life-Threatening)
  Sender: FDA-Public Use
  Company Number: FR-TEVA-354128ISR

PATIENT
  Sex: Male

DRUGS (1)
  1. ETOPOSIDE [Suspect]
     Indication: HODGKIN'S DISEASE STAGE III
     Dosage: 132 MILLIGRAM DAILY;
     Route: 041
     Dates: start: 20120731, end: 20120731

REACTIONS (3)
  - BRADYCARDIA [None]
  - OXYGEN SATURATION DECREASED [None]
  - MALAISE [None]
